FAERS Safety Report 5605761-1 (Version None)
Quarter: 2008Q1

REPORT INFORMATION
  Report Type: 
  Country: None (occurrence: None)
  Receive Date: 20080129
  Receipt Date: 20080116
  Transmission Date: 20080703
  Serious: Yes (Death, Hospitalization, Other)
  Sender: FDA-Public Use
  Company Number: US-ELI_LILLY_AND_COMPANY-US200801003320

PATIENT
  Sex: Male

DRUGS (2)
  1. FORTEO [Suspect]
     Indication: BONE PAIN
     Route: 058
     Dates: start: 20070901
  2. OXYCONTIN [Concomitant]

REACTIONS (4)
  - DIET REFUSAL [None]
  - GENERAL PHYSICAL HEALTH DETERIORATION [None]
  - MALIGNANT MELANOMA [None]
  - RENAL FAILURE [None]
